FAERS Safety Report 8054799-6 (Version None)
Quarter: 2012Q1

REPORT INFORMATION
  Report Type: 
  Country: None (occurrence: None)
  Receive Date: 20120119
  Receipt Date: 20120109
  Transmission Date: 20120608
  Serious: Yes (Hospitalization)
  Sender: FDA-Public Use
  Company Number: US-BAYER-2010-001154

PATIENT
  Age: 31 Year
  Sex: Female
  Weight: 86.168 kg

DRUGS (3)
  1. DROSPIRENONE AND ETHINYL ESTRADIOL [Suspect]
     Indication: CONTRACEPTION
     Dosage: UNK
     Route: 048
     Dates: start: 20080201, end: 20090301
  2. VALIUM [Concomitant]
     Indication: ANXIETY
     Dosage: UNK
     Dates: start: 20010101
  3. MULTI-VITAMINS [Concomitant]
     Dosage: UNK
     Dates: start: 20090330

REACTIONS (6)
  - CHOLECYSTITIS CHRONIC [None]
  - GALLBLADDER INJURY [None]
  - BLOOD URINE PRESENT [None]
  - CHOLELITHIASIS [None]
  - VAGINAL HAEMORRHAGE [None]
  - CHOLESTEROSIS [None]
